FAERS Safety Report 9205271 (Version 9)
Quarter: 2013Q2

REPORT INFORMATION
  Report Type: Spontaneous
  Country: JP (occurrence: JP)
  Receive Date: 20130402
  Receipt Date: 20130521
  Transmission Date: 20140414
  Serious: Yes (Other)
  Sender: FDA-Public Use
  Company Number: CHNY2013JP000870

PATIENT
  Sex: Male

DRUGS (4)
  1. NICOTINELL TTS [Suspect]
     Indication: SMOKING CESSATION THERAPY
     Dosage: 17.5 MG, QD
     Route: 062
     Dates: start: 201304
  2. NICOTINELL TTS [Suspect]
     Dosage: 35 MG, QD
     Route: 062
     Dates: start: 201303
  3. NICOTINELL TTS [Suspect]
     Dosage: 52.5 MG, QD
     Route: 062
     Dates: start: 201303
  4. HYPNOTICS AND SEDATIVES [Concomitant]

REACTIONS (9)
  - Pulmonary oedema [Unknown]
  - Terminal insomnia [Unknown]
  - Nicotine dependence [Unknown]
  - Condition aggravated [Unknown]
  - Irritability [Unknown]
  - Abnormal dreams [Unknown]
  - Somnolence [Unknown]
  - Dizziness [Unknown]
  - Nicotine dependence [Recovering/Resolving]
